FAERS Safety Report 8987452 (Version 3)
Quarter: 2013Q2

REPORT INFORMATION
  Report Type: Report from Study
  Country: US (occurrence: US)
  Receive Date: 20121227
  Receipt Date: 20130405
  Transmission Date: 20140414
  Serious: Yes (Hospitalization)
  Sender: FDA-Public Use
  Company Number: US-ROCHE-1158338

PATIENT
  Age: 50 Year
  Sex: Female
  Weight: 82.4 kg

DRUGS (14)
  1. ADO-TRASTUZUMAB EMTANSINE [Suspect]
     Indication: BREAST CANCER METASTATIC
     Dosage: DOSE OF TRASTUZUMAB EMTANSINE TAKEN: 320, DATE OF LAST DOSE : 23/NOV/2012
     Route: 042
     Dates: start: 20121102
  2. ADO-TRASTUZUMAB EMTANSINE [Suspect]
     Route: 042
     Dates: start: 20121123
  3. PERTUZUMAB [Suspect]
     Indication: BREAST CANCER METASTATIC
     Dosage: DOSE TAKEN 840, LASTDATE OF DOSE : 23/NOV/2012
     Route: 042
     Dates: start: 20121102
  4. PERTUZUMAB [Suspect]
     Dosage: DOSE: 420
     Route: 042
     Dates: start: 20121123
  5. PACLITAXEL [Suspect]
     Indication: BREAST CANCER METASTATIC
     Dosage: DOSE OF PACLITAXEL 120, DATE OF LAST DOSE:07/DEC /2012
     Route: 042
     Dates: start: 20121102
  6. PACLITAXEL [Suspect]
     Route: 042
     Dates: start: 20121207
  7. LEVAQUIN [Concomitant]
     Indication: URINARY TRACT INFECTION
     Route: 065
     Dates: end: 20121114
  8. OXYCODONE/APAP [Concomitant]
     Indication: PAIN
     Route: 065
     Dates: start: 20120426
  9. LOSARTAN [Concomitant]
     Indication: HYPERTENSION
     Route: 065
     Dates: start: 20120326
  10. LYRICA [Concomitant]
     Indication: NEUROPATHY PERIPHERAL
     Route: 065
     Dates: start: 20120616
  11. ZOFRAN [Concomitant]
     Indication: NAUSEA
     Route: 065
     Dates: start: 20120615
  12. COMPAZINE [Concomitant]
     Indication: NAUSEA
     Route: 065
     Dates: start: 20120426
  13. FENTANYL PATCH [Concomitant]
     Indication: PAIN
     Route: 065
     Dates: start: 20120424, end: 20130104
  14. PROSTAT [Concomitant]
     Dosage: 2 TABLESPOONS
     Route: 065
     Dates: start: 20120810

REACTIONS (2)
  - Chills [Recovered/Resolved]
  - Nausea [Recovered/Resolved]
